FAERS Safety Report 5897839-2 (Version None)
Quarter: 2008Q3

REPORT INFORMATION
  Report Type: 
  Country: None (occurrence: None)
  Receive Date: 20080923
  Receipt Date: 20080908
  Transmission Date: 20090109
  Serious: Yes (Other)
  Sender: FDA-Public Use
  Company Number: GB-1167241

PATIENT
  Age: 73 Year

DRUGS (1)
  1. PILOCARPINE [Suspect]
     Indication: ANGLE CLOSURE GLAUCOMA
     Dosage: OPHTHALMIC
     Route: 047

REACTIONS (5)
  - ANGLE CLOSURE GLAUCOMA [None]
  - CATARACT OPERATION [None]
  - INTRAOCULAR LENS IMPLANT [None]
  - INTRAOCULAR PRESSURE INCREASED [None]
  - VISUAL ACUITY REDUCED [None]
